FAERS Safety Report 6409247-6 (Version None)
Quarter: 2009Q4

REPORT INFORMATION
  Report Type: 
  Country: None (occurrence: None)
  Receive Date: 20091021
  Receipt Date: 20091013
  Transmission Date: 20100525
  Serious: Yes (Hospitalization)
  Sender: FDA-Public Use
  Company Number: JP-SANOFI-SYNTHELABO-A01200908410

PATIENT
  Sex: Male
  Weight: 61.3 kg

DRUGS (3)
  1. BLOPRESS [Concomitant]
     Indication: HYPERTENSION
     Route: 048
     Dates: start: 20081202, end: 20090806
  2. PLAVIX [Suspect]
     Indication: CEREBRAL INFARCTION
     Route: 048
     Dates: start: 20081202, end: 20090808
  3. ZYLORIC [Concomitant]
     Indication: HYPERURICAEMIA
     Route: 048
     Dates: start: 20081202, end: 20090806

REACTIONS (6)
  - ABDOMINAL DISCOMFORT [None]
  - ASTHENIA [None]
  - BILE DUCT STONE [None]
  - HEPATIC FUNCTION ABNORMAL [None]
  - MALAISE [None]
  - RASH [None]
